FAERS Safety Report 9512683 (Version 2)
Quarter: 2013Q3

REPORT INFORMATION
  Report Type: Spontaneous
  Country: NZ (occurrence: NZ)
  Receive Date: 20130910
  Receipt Date: 20130910
  Transmission Date: 20140515
  Serious: Yes (Disabling)
  Sender: FDA-Public Use
  Company Number: NZ-B.I. PHARMACEUTICALS,INC./RIDGEFIELD-2013-AU-00999AU

PATIENT
  Age: 77 Year
  Sex: Male
  Weight: 94 kg

DRUGS (6)
  1. SPIRIVA [Suspect]
     Indication: CHRONIC OBSTRUCTIVE PULMONARY DISEASE
     Dosage: 18 MG
     Dates: start: 20121226, end: 20130510
  2. CITALOPRAM [Concomitant]
     Dosage: 20 MG
     Dates: start: 20130108
  3. OMEPRAZOLE [Concomitant]
     Dosage: 20 MG
     Dates: start: 20010724
  4. SIMVASTATIN [Concomitant]
     Dosage: 20 MG
     Dates: start: 20090908
  5. ACCUPRIL [Concomitant]
     Dosage: 40 MG
     Dates: start: 20090908
  6. ASPIRIN [Concomitant]
     Dosage: 100 MG
     Dates: start: 20070218, end: 20130723

REACTIONS (2)
  - Vitreous detachment [Unknown]
  - Glossitis [Recovered/Resolved]
